FAERS Safety Report 16799189 (Version 1)
Quarter: 2019Q3

REPORT INFORMATION
  Report Type: Spontaneous
  Country: US (occurrence: US)
  Receive Date: 20190722
  Receipt Date: 20190722
  Transmission Date: 20191005
  Serious: Yes (Other)
  Sender: FDA-Public Use
  Company Number: None

PATIENT
  Age: 58 Year
  Sex: Male
  Weight: 86.18 kg

DRUGS (12)
  1. L-ARGININE [Concomitant]
     Active Substance: ARGININE
  2. MULTIVITAMIN [Concomitant]
     Active Substance: VITAMINS
  3. EQUATE RESTORE PM NIGHTTIME LUBRICANT EYE [Suspect]
     Active Substance: MINERAL OIL\PETROLATUM
  4. WALGREENS LUBRICANT EYE PRESERVATIVE FREE [Suspect]
     Active Substance: MINERAL OIL\PETROLATUM
  5. MAGNESIUM L- THREONATE [Concomitant]
  6. L-CITRULLINE [Concomitant]
     Active Substance: CITRULLINE
  7. WALGREENS LUBRICANT EYE DROPS [Suspect]
     Active Substance: POLYETHYLENE GLYCOL 400\PROPYLENE GLYCOL
     Indication: CORNEAL EROSION
     Dosage: ?          OTHER FREQUENCY:HRLY AS NEEDED;OTHER ROUTE:TOPICALLY ON EYE?
     Dates: start: 20190615
  8. KRILL OIL [Concomitant]
     Active Substance: DIETARY SUPPLEMENT\KRILL OIL
  9. KOREAN PANAX GINSENG [Concomitant]
  10. B-12/L-5-MTTHF [Concomitant]
  11. GLUCOSAMINE/CHOONDROITIN/TURMERIC [Concomitant]
  12. CITRUS BIOFLAVONOIDS. [Concomitant]
     Active Substance: CITRUS BIOFLAVONOIDS

REACTIONS (3)
  - Keratitis [None]
  - Vitreous floaters [None]
  - Recalled product administered [None]

NARRATIVE: CASE EVENT DATE: 20190618
